FAERS Safety Report 10760114 (Version 1)
Quarter: 2015Q1

REPORT INFORMATION
  Report Type: Report from Study
  Country: CA (occurrence: CA)
  Receive Date: 20150204
  Receipt Date: 20150204
  Transmission Date: 20150721
  Serious: Yes (Other)
  Sender: FDA-Public Use
  Company Number: CA-ROCHE-1530111

PATIENT
  Age: 52 Year
  Sex: Male
  Weight: 100 kg

DRUGS (4)
  1. BENADRYL [Concomitant]
     Active Substance: DIPHENHYDRAMINE HYDROCHLORIDE
     Indication: PREMEDICATION
     Route: 048
     Dates: start: 20140911
  2. RITUXAN [Suspect]
     Active Substance: RITUXIMAB
     Indication: PRODUCT USED FOR UNKNOWN INDICATION
     Dosage: LAST INFUSION ON 18/SEP/2014
     Route: 042
     Dates: start: 20140911
  3. METHYLPREDNISOLONE. [Concomitant]
     Active Substance: METHYLPREDNISOLONE
     Indication: PREMEDICATION
     Route: 042
     Dates: start: 20140911
  4. TYLENOL [Concomitant]
     Active Substance: ACETAMINOPHEN
     Indication: PREMEDICATION
     Route: 048
     Dates: start: 20140911

REACTIONS (3)
  - Weight increased [Unknown]
  - Cough [Not Recovered/Not Resolved]
  - Blood pressure increased [Unknown]

NARRATIVE: CASE EVENT DATE: 20141008
